FAERS Safety Report 24563698 (Version 2)
Quarter: 2024Q4

REPORT INFORMATION
  Report Type: Report from Study
  Country: US (occurrence: US)
  Receive Date: 20241030
  Receipt Date: 20241108
  Transmission Date: 20250114
  Serious: Yes (Death, Other)
  Sender: INSMED
  Company Number: US-INSMED-2023-04406-USAA

PATIENT
  Sex: Male

DRUGS (1)
  1. ARIKAYCE [Suspect]
     Active Substance: AMIKACIN
     Indication: Mycobacterium avium complex infection
     Dosage: 590 MILLIGRAM, QD
     Route: 055
     Dates: start: 20230827, end: 2024

REACTIONS (3)
  - Death [Fatal]
  - Aspergillus infection [Unknown]
  - Illness [Unknown]

NARRATIVE: CASE EVENT DATE: 20230101
